FAERS Safety Report 10936665 (Version 1)
Quarter: 2015Q1

REPORT INFORMATION
  Report Type: Spontaneous
  Country: US (occurrence: None)
  Receive Date: 20150129
  Receipt Date: 20150129
  Transmission Date: 20150721
  Serious: No
  Sender: FDA-Public Use
  Company Number: A-NJ2014-105638

PATIENT
  Age: 52 Year
  Sex: Female

DRUGS (10)
  1. OPSUMIT [Suspect]
     Active Substance: MACITENTAN
     Indication: PRODUCT USED FOR UNKNOWN INDICATION
     Route: 048
     Dates: start: 20140331
  2. OMEPRAZOLE (OMEPRAZOLE) [Concomitant]
     Active Substance: OMEPRAZOLE
  3. LOSARTAN (LOSARTAN) [Concomitant]
     Active Substance: LOSARTAN
  4. RANITIDINE [Concomitant]
     Active Substance: RANITIDINE\RANITIDINE HYDROCHLORIDE
  5. CORDARNOE (AMIODARONE HYDROCHLORIDE) [Concomitant]
  6. METOPROLOL (METOPROLOL) [Concomitant]
     Active Substance: METOPROLOL
  7. XARELTO [Concomitant]
     Active Substance: RIVAROXABAN
  8. CIRUELAX (CITRIC ACID, HONEY, LINUM USITATISSIMUM, PRUNUS DOMESTICA, SENNA ALEXANDRIA, SUCROSE, TRITICUM AESTIVUM) [Concomitant]
  9. ALDACTONE [Concomitant]
     Active Substance: SPIRONOLACTONE
  10. LASIX [Concomitant]
     Active Substance: FUROSEMIDE

REACTIONS (1)
  - Vulvovaginal mycotic infection [None]

NARRATIVE: CASE EVENT DATE: 20140915
